FAERS Safety Report 6907993-9 (Version None)
Quarter: 2010Q3

REPORT INFORMATION
  Report Type: 
  Country: None (occurrence: None)
  Receive Date: 20100805
  Receipt Date: 20100722
  Transmission Date: 20110219
  Serious: Yes (Death)
  Sender: FDA-Public Use
  Company Number: AU-RANBAXY-2010RR-36585

PATIENT
  Age: 25 Year
  Sex: Female

DRUGS (3)
  1. DEXTROAMPHETAMINE AND AMPHETAMINE SALTS [Suspect]
  2. MDMA [Suspect]
  3. METHAMPHETAMINE HYDROCHLORIDE [Suspect]

REACTIONS (5)
  - ASTHMA [None]
  - BRAIN INJURY [None]
  - DRUG INTERACTION [None]
  - DRUG TOXICITY [None]
  - SEROTONIN SYNDROME [None]
